FAERS Safety Report 17730351 (Version 3)
Quarter: 2020Q2

REPORT INFORMATION
  Report Type: Spontaneous
  Country: US (occurrence: US)
  Receive Date: 20200430
  Receipt Date: 20200612
  Transmission Date: 20200714
  Serious: No
  Sender: FDA-Public Use
  Company Number: US-PFIZER INC-2020174609

PATIENT
  Age: 86 Year
  Sex: Male
  Weight: 68.04 kg

DRUGS (2)
  1. VYNDAQEL [Suspect]
     Active Substance: TAFAMIDIS MEGLUMINE
     Indication: CARDIAC AMYLOIDOSIS
     Dosage: 80 MG, 1X/DAY (FOUR CAPSULES A DAY BY MOUTH AT ONCE)
     Route: 048
     Dates: start: 201911
  2. ELIQUIS [Concomitant]
     Active Substance: APIXABAN
     Indication: ANTICOAGULANT THERAPY
     Dosage: UNK, 2X/DAY

REACTIONS (2)
  - Weight decreased [Unknown]
  - Drug ineffective [Unknown]
